FAERS Safety Report 9068482 (Version 1)
Quarter: 2013Q1

REPORT INFORMATION
  Report Type: Spontaneous
  Country: DE (occurrence: DE)
  Receive Date: 20130128
  Receipt Date: 20130128
  Transmission Date: 20140127
  Serious: Yes (Hospitalization)
  Sender: FDA-Public Use
  Company Number: GXKR2013DE000650

PATIENT
  Sex: Male

DRUGS (1)
  1. METOHEXAL [Suspect]
     Dosage: 1 UNK, ONCE/SINGLE
     Route: 048

REACTIONS (1)
  - Blood pressure increased [Unknown]
